FAERS Safety Report 6391968-5 (Version None)
Quarter: 2009Q4

REPORT INFORMATION
  Report Type: 
  Country: None (occurrence: None)
  Receive Date: 20091007
  Receipt Date: 20091005
  Transmission Date: 20100525
  Serious: Yes (Other)
  Sender: FDA-Public Use
  Company Number: A0810617A

PATIENT
  Age: 16 Year
  Sex: Female

DRUGS (3)
  1. LAMICTAL [Suspect]
     Dosage: 200MG PER DAY
     Route: 048
  2. LOESTRIN 1.5/30 [Suspect]
     Indication: DRUG USE FOR UNKNOWN INDICATION
  3. GEODON [Concomitant]

REACTIONS (2)
  - DEPRESSION [None]
  - DRUG INTERACTION [None]
